FAERS Safety Report 9466866 (Version 1)
Quarter: 2013Q3

REPORT INFORMATION
  Report Type: Spontaneous
  Country: JP (occurrence: JP)
  Receive Date: 20130820
  Receipt Date: 20130820
  Transmission Date: 20140515
  Serious: Yes (Other)
  Sender: FDA-Public Use
  Company Number: PHHY2013JP089914

PATIENT
  Sex: Male

DRUGS (1)
  1. DIOVAN [Suspect]
     Dosage: UNK UKN, UNK
     Route: 048

REACTIONS (5)
  - Uveitis [Unknown]
  - Rash [Unknown]
  - Erythema [Unknown]
  - Pruritus [Unknown]
  - Swelling [Unknown]
